FAERS Safety Report 7464405-7 (Version None)
Quarter: 2011Q2

REPORT INFORMATION
  Report Type: 
  Country: None (occurrence: None)
  Receive Date: 20110509
  Receipt Date: 20110504
  Transmission Date: 20111010
  Serious: Yes (Other)
  Sender: FDA-Public Use
  Company Number: US-PFIZER INC-2011096828

PATIENT
  Sex: Male
  Weight: 107.94 kg

DRUGS (2)
  1. EFFEXOR XR [Suspect]
     Indication: ANXIETY
     Dosage: 150 MG, UNK
     Route: 048
  2. EFFEXOR XR [Suspect]
     Indication: DEPRESSION

REACTIONS (3)
  - DRUG DOSE OMISSION [None]
  - WEIGHT DECREASED [None]
  - DECREASED APPETITE [None]
